FAERS Safety Report 7930143-7 (Version None)
Quarter: 2011Q4

REPORT INFORMATION
  Report Type: 
  Country: None (occurrence: None)
  Receive Date: 20111117
  Receipt Date: 20111102
  Transmission Date: 20120403
  Serious: Yes (Hospitalization, Other)
  Sender: FDA-Public Use
  Company Number: 2011MA015933

PATIENT
  Age: 33 Year
  Sex: Female

DRUGS (2)
  1. VENLAFAXINE [Suspect]
     Indication: PRODUCT USED FOR UNKNOWN INDICATION
     Dosage: 150 MG;QD;UNK
  2. RISPERIDONE [Suspect]
     Indication: INTENTIONAL OVERDOSE
     Dosage: 60 MG;X1;PO
     Route: 048

REACTIONS (6)
  - ANTICHOLINERGIC SYNDROME [None]
  - BLOOD BILIRUBIN DECREASED [None]
  - OVERDOSE [None]
  - TACHYCARDIA [None]
  - ELECTROCARDIOGRAM QT PROLONGED [None]
  - BLOOD CALCIUM DECREASED [None]
